FAERS Safety Report 15588013 (Version 2)
Quarter: 2018Q4

REPORT INFORMATION
  Report Type: Report from Study
  Country: US (occurrence: US)
  Receive Date: 20181105
  Receipt Date: 20181130
  Transmission Date: 20190205
  Serious: Yes (Hospitalization)
  Sender: FDA-Public Use
  Company Number: US-ACTELION-A-NJ2018-181255

PATIENT
  Age: 37 Year
  Sex: Female

DRUGS (3)
  1. OPSUMIT [Suspect]
     Active Substance: MACITENTAN
     Indication: PULMONARY ARTERIAL HYPERTENSION
     Dosage: 10 MG, QD
     Route: 048
     Dates: start: 2014
  2. REMODULIN [Concomitant]
     Active Substance: TREPROSTINIL
     Dosage: 121 NG/KG, PER MIN
     Route: 058
  3. ADCIRCA [Concomitant]
     Active Substance: TADALAFIL
     Dosage: 40 MG, UNK
     Route: 048

REACTIONS (3)
  - Hernia repair [Recovered/Resolved]
  - Small intestinal obstruction [Recovered/Resolved]
  - Incarcerated umbilical hernia [Recovered/Resolved]

NARRATIVE: CASE EVENT DATE: 20181026
